FAERS Safety Report 14677888 (Version 1)
Quarter: 2018Q1

REPORT INFORMATION
  Report Type: Spontaneous
  Country: US (occurrence: US)
  Receive Date: 20180326
  Receipt Date: 20180326
  Transmission Date: 20180509
  Serious: No
  Sender: FDA-Public Use
  Company Number: US-ELI_LILLY_AND_COMPANY-US201803004922

PATIENT
  Sex: Female

DRUGS (2)
  1. HUMALOG [Suspect]
     Active Substance: INSULIN LISPRO
     Indication: PRODUCT USED FOR UNKNOWN INDICATION
     Dosage: UNK UNK, UNKNOWN
     Route: 058
     Dates: start: 2014
  2. HUMALOG [Suspect]
     Active Substance: INSULIN LISPRO
     Dosage: UNK, UNKNOWN
     Route: 058
     Dates: start: 2014

REACTIONS (4)
  - Drug ineffective [Unknown]
  - Blood glucose increased [Not Recovered/Not Resolved]
  - Incorrect drug administration duration [Unknown]
  - Product storage error [Unknown]

NARRATIVE: CASE EVENT DATE: 2014
